FAERS Safety Report 22197183 (Version 2)
Quarter: 2023Q2

REPORT INFORMATION
  Report Type: Spontaneous
  Country: FR (occurrence: FR)
  Receive Date: 20230411
  Receipt Date: 20230413
  Transmission Date: 20230722
  Serious: Yes (Other)
  Sender: FDA-Public Use
  Company Number: FR-009507513-2304FRA001974

PATIENT
  Age: 70 Year
  Sex: Male

DRUGS (10)
  1. PEMBROLIZUMAB [Suspect]
     Active Substance: PEMBROLIZUMAB
     Indication: Lung squamous cell carcinoma stage IV
     Dosage: FIRST LINE
     Dates: end: 20230203
  2. PEMBROLIZUMAB [Suspect]
     Active Substance: PEMBROLIZUMAB
     Indication: Metastases to bone
     Dosage: MAINTENANCE
     Dates: start: 20230313
  3. SKENAN [Concomitant]
     Active Substance: MORPHINE SULFATE
     Dosage: MORNING AND EVENING, FORMULATION: PROLONGED-RELEASE
  4. MORPHINE [Concomitant]
     Active Substance: MORPHINE
     Dosage: 30 MILLIGRAM, PRN
  5. LIDOCAINE [Concomitant]
     Active Substance: LIDOCAINE
     Dosage: FORMULATION: PATCHES
  6. POLYETHYLENE GLYCOL 3350\POTASSIUM CHLORIDE\SODIUM BICARBONATE\SODIUM [Concomitant]
     Active Substance: POLYETHYLENE GLYCOL 3350\POTASSIUM CHLORIDE\SODIUM BICARBONATE\SODIUM CHLORIDE
  7. ACETAMINOPHEN [Concomitant]
     Active Substance: ACETAMINOPHEN
  8. KARDEGIC [Concomitant]
     Active Substance: ASPIRIN DL-LYSINE
  9. CRESTOR [Concomitant]
     Active Substance: ROSUVASTATIN CALCIUM
  10. SILODOSIN [Concomitant]
     Active Substance: SILODOSIN

REACTIONS (17)
  - Cholangitis [Not Recovered/Not Resolved]
  - Gastrointestinal oedema [Unknown]
  - Aortic arteriosclerosis [Unknown]
  - Hydrocholecystis [Unknown]
  - Therapy partial responder [Unknown]
  - Renal cyst [Unknown]
  - Diverticulum intestinal [Unknown]
  - Aspartate aminotransferase abnormal [Unknown]
  - Alanine aminotransferase abnormal [Unknown]
  - Gamma-glutamyltransferase abnormal [Unknown]
  - Blood alkaline phosphatase abnormal [Unknown]
  - Blood bilirubin abnormal [Unknown]
  - Adrenal disorder [Unknown]
  - Bilirubin conjugated abnormal [Unknown]
  - Vomiting [Unknown]
  - Diarrhoea [Unknown]
  - Decreased appetite [Unknown]

NARRATIVE: CASE EVENT DATE: 20230224
